FAERS Safety Report 5399104-9 (Version None)
Quarter: 2007Q3

REPORT INFORMATION
  Report Type: 
  Country: None (occurrence: None)
  Receive Date: 20070727
  Receipt Date: 20070329
  Transmission Date: 20080115
  Serious: No
  Sender: FDA-Public Use
  Company Number: A0645228A

PATIENT
  Age: 70 Year
  Sex: Female

DRUGS (2)
  1. LOTRONEX [Suspect]
     Indication: COLITIS COLLAGENOUS
     Dosage: 1MG TWICE PER DAY
     Route: 048
     Dates: start: 20070301
  2. THYROID TAB [Concomitant]

REACTIONS (2)
  - DRUG INEFFECTIVE [None]
  - OFF LABEL USE [None]
